FAERS Safety Report 10436530 (Version 2)
Quarter: 2014Q3

REPORT INFORMATION
  Report Type: Spontaneous
  Country: US (occurrence: US)
  Receive Date: 20140908
  Receipt Date: 20140908
  Transmission Date: 20150326
  Serious: Yes (Hospitalization)
  Sender: FDA-Public Use
  Company Number: US-BRISTOL-MYERS SQUIBB COMPANY-19175009

PATIENT
  Age: 26 Year
  Sex: Male
  Weight: 74.83 kg

DRUGS (6)
  1. VITAMIN B [Concomitant]
     Active Substance: VITAMIN B
  2. MULTIVITAMIN [Concomitant]
     Active Substance: VITAMINS
  3. ABILIFY [Suspect]
     Active Substance: ARIPIPRAZOLE
     Indication: AUTISM
     Dosage: 1DF:4.5MG-5MG :INC TO 1.2MG ON 30MAY2013
     Route: 048
  4. FIBERCON [Concomitant]
     Active Substance: CALCIUM POLYCARBOPHIL
  5. ATIVAN [Suspect]
     Active Substance: LORAZEPAM
     Indication: FEELING ABNORMAL
     Dosage: 2MG, 4MG, 6MG AND IS CURRENTLY TAKING 0.5MG
     Route: 042
     Dates: start: 201305
  6. MAGNESIUM [Concomitant]
     Active Substance: MAGNESIUM

REACTIONS (7)
  - Depressed mood [Unknown]
  - Feeling abnormal [Unknown]
  - Parkinsonism [Unknown]
  - Off label use [Unknown]
  - Hyperkeratosis [Unknown]
  - Posturing [Unknown]
  - Viral infection [Unknown]

NARRATIVE: CASE EVENT DATE: 2006
